FAERS Safety Report 5897273-5 (Version None)
Quarter: 2008Q3

REPORT INFORMATION
  Report Type: 
  Country: None (occurrence: None)
  Receive Date: 20080924
  Receipt Date: 20080924
  Transmission Date: 20090109
  Serious: Yes (Disabling)
  Sender: FDA-Public Use
  Company Number: None

PATIENT
  Age: 65 Year
  Sex: Female
  Weight: 54.4316 kg

DRUGS (1)
  1. NEOSPORIN [Suspect]
     Indication: SKIN LACERATION
     Dosage: AS DIRECTED FINGER LESS THAN 7 DAYS
     Dates: start: 20080501

REACTIONS (1)
  - DRUG HYPERSENSITIVITY [None]
